FAERS Safety Report 9723211 (Version 1)
Quarter: 2013Q4

REPORT INFORMATION
  Report Type: Spontaneous
  Country: HR (occurrence: HR)
  Receive Date: 20131202
  Receipt Date: 20131202
  Transmission Date: 20140711
  Serious: Yes (Disabling)
  Sender: FDA-Public Use
  Company Number: HR-NOVOPROD-393754

PATIENT
  Sex: Female
  Weight: 76.5 kg

DRUGS (6)
  1. NOVOMIX 30 FLEXPEN [Suspect]
     Indication: DIABETES MELLITUS
     Dosage: 50 U, QD, 36 U MORNING AND 14 U EVENING
     Dates: start: 20121229
  2. SIOFOR [Concomitant]
     Indication: DIABETES MELLITUS
     Dosage: 1 TAB, BID, 1 TAB MORNING , 1 TAB EVENING
     Route: 048
  3. PREXANIL A [Concomitant]
     Indication: PRODUCT USED FOR UNKNOWN INDICATION
     Dosage: 10 MG, QD, 5 MG MORNING, 5 MG EVENING
     Route: 048
  4. LESCOL [Concomitant]
     Dosage: 80 MG, QD
     Route: 048
  5. MARTEFARIN [Concomitant]
     Dosage: 3 MG, QD
     Route: 048
  6. CEFIXIME [Concomitant]
     Dosage: 29122012 UNK, UNK
     Dates: start: 20121229, end: 20130108

REACTIONS (8)
  - Dizziness [Unknown]
  - Hyperhidrosis [Unknown]
  - Syncope [Unknown]
  - Speech disorder [Unknown]
  - Balance disorder [Unknown]
  - Pallor [Unknown]
  - Pain [Unknown]
  - Disorientation [Unknown]
